FAERS Safety Report 8567426-6 (Version None)
Quarter: 2012Q3

REPORT INFORMATION
  Report Type: 
  Country: None (occurrence: None)
  Receive Date: 20120803
  Receipt Date: 20120730
  Transmission Date: 20120928
  Serious: Yes (Hospitalization)
  Sender: FDA-Public Use
  Company Number: PHHY2012BR044913

PATIENT
  Sex: Female
  Weight: 75 kg

DRUGS (8)
  1. JANUMET [Concomitant]
     Indication: DIABETES MELLITUS
     Dosage: 1 DF, BID
  2. METFORMIN HYDROCHLORIDE [Concomitant]
     Indication: DIABETES MELLITUS
  3. GLIMEPIRIDE [Concomitant]
     Indication: ASTHMA
  4. ROSUVASTATIN [Concomitant]
     Indication: BLOOD TRIGLYCERIDES ABNORMAL
  5. ONBREZ [Suspect]
     Indication: ASTHMA
     Dosage: 300 UG, BID
  6. FUROSEMIDE [Concomitant]
  7. FORMOTEROL FUMARATE [Concomitant]
     Indication: ASTHMA
     Dosage: UNK UKN, 3 INHALATIONS DAILY, FOR 6 YEARS AGO
  8. SPIRONOLACTONE [Concomitant]

REACTIONS (5)
  - INAPPROPRIATE SCHEDULE OF DRUG ADMINISTRATION [None]
  - FLUID RETENTION [None]
  - DYSPNOEA [None]
  - COUGH [None]
  - SWELLING [None]
